FAERS Safety Report 5473210-2 (Version None)
Quarter: 2007Q4

REPORT INFORMATION
  Report Type: 
  Country: None (occurrence: None)
  Receive Date: 20071001
  Receipt Date: 20070920
  Transmission Date: 20080405
  Serious: Yes (Other)
  Sender: FDA-Public Use
  Company Number: DE-ROCHE-520544

PATIENT
  Age: 38 Year
  Sex: Female
  Weight: 60 kg

DRUGS (3)
  1. ROACCUTAN [Suspect]
     Dosage: SECOND INDICATION REPORTED AS RELAPSING FURUNCULOSIS.
     Route: 048
  2. ROACCUTAN [Suspect]
     Route: 048
  3. YASMIN [Concomitant]
     Indication: CONTRACEPTION
     Dosage: STRENGTH REPORTED AS 0.03 MG/3 MG TABLET.
     Route: 048

REACTIONS (6)
  - AMNESIA [None]
  - ANXIETY [None]
  - CONFUSIONAL STATE [None]
  - COORDINATION ABNORMAL [None]
  - HALLUCINATION [None]
  - PSYCHOTIC DISORDER [None]
